FAERS Safety Report 7707909-1 (Version None)
Quarter: 2011Q3

REPORT INFORMATION
  Report Type: 
  Country: None (occurrence: None)
  Receive Date: 20110824
  Receipt Date: 20110817
  Transmission Date: 20111222
  Serious: Yes (Other)
  Sender: FDA-Public Use
  Company Number: US-US-EMD SERONO, INC.-7077632

PATIENT
  Sex: Female
  Weight: 77 kg

DRUGS (3)
  1. REBIF [Suspect]
     Indication: MULTIPLE SCLEROSIS
     Dates: start: 20090101
  2. REBIF [Suspect]
     Dates: start: 20110817
  3. UNSPECIFIED MEDICATIONS [Concomitant]

REACTIONS (1)
  - BREAST CANCER [None]
